FAERS Safety Report 11612251 (Version 2)
Quarter: 2015Q4

REPORT INFORMATION
  Report Type: Report from Study
  Country: ML (occurrence: ML)
  Receive Date: 20151008
  Receipt Date: 20151021
  Transmission Date: 20160304
  Serious: Yes (Death)
  Sender: FDA-Public Use
  Company Number: PHHY2015ML121478

PATIENT
  Age: 60 Year
  Sex: Male
  Weight: 58 kg

DRUGS (2)
  1. GLIVEC [Suspect]
     Active Substance: IMATINIB MESYLATE
     Indication: CHRONIC MYELOID LEUKAEMIA
     Dosage: 600 MG
     Route: 048
     Dates: start: 20080801, end: 20151001
  2. ATENOLOL. [Concomitant]
     Active Substance: ATENOLOL
     Indication: HYPERTENSION
     Dosage: 50 MG, QD
     Route: 065
     Dates: start: 200310, end: 20151001

REACTIONS (6)
  - Nausea [Unknown]
  - White blood cell count increased [Unknown]
  - Chronic myeloid leukaemia [Fatal]
  - Haemoglobin decreased [Unknown]
  - Platelet count increased [Unknown]
  - Vomiting [Unknown]

NARRATIVE: CASE EVENT DATE: 20151001
